FAERS Safety Report 22061716 (Version 1)
Quarter: 2023Q1

REPORT INFORMATION
  Report Type: Report from Study
  Country: CO (occurrence: CO)
  Receive Date: 20230304
  Receipt Date: 20230304
  Transmission Date: 20230417
  Serious: Yes (Hospitalization, Other)
  Sender: FDA-Public Use
  Company Number: CO-JNJFOC-20230219067

PATIENT
  Age: 58 Year
  Sex: Male
  Weight: 62 kg

DRUGS (7)
  1. RISPERDAL CONSTA [Suspect]
     Active Substance: RISPERIDONE
     Indication: Bipolar disorder
     Dosage: LAST APPLICATION DATE: 23-FEB-2023
     Route: 030
     Dates: start: 20210303
  2. RISPERDAL CONSTA [Suspect]
     Active Substance: RISPERIDONE
  3. RISPERDAL CONSTA [Suspect]
     Active Substance: RISPERIDONE
  4. RISPERDAL CONSTA [Suspect]
     Active Substance: RISPERIDONE
  5. VALPROIC ACID [Concomitant]
     Active Substance: VALPROIC ACID
  6. LITHIUM CARBONATE [Concomitant]
     Active Substance: LITHIUM CARBONATE
  7. CLOZAPINE [Concomitant]
     Active Substance: CLOZAPINE

REACTIONS (4)
  - Fall [Not Recovered/Not Resolved]
  - Lung perforation [Not Recovered/Not Resolved]
  - Rib fracture [Not Recovered/Not Resolved]
  - Parkinson^s disease [Not Recovered/Not Resolved]

NARRATIVE: CASE EVENT DATE: 20220101
